FAERS Safety Report 21907990 (Version 1)
Quarter: 2023Q1

REPORT INFORMATION
  Report Type: Spontaneous
  Country: IN (occurrence: IN)
  Receive Date: 20230125
  Receipt Date: 20230125
  Transmission Date: 20230418
  Serious: Yes (Other)
  Sender: FDA-Public Use
  Company Number: IN-HALEON-INCH2023GSK003459

PATIENT

DRUGS (4)
  1. FLUTICASONE PROPIONATE [Suspect]
     Active Substance: FLUTICASONE PROPIONATE
     Indication: Asthma
     Dosage: UNK
  2. FORMOTEROL [Suspect]
     Active Substance: FORMOTEROL
     Indication: Asthma
     Dosage: UNK
  3. BUDESONIDE [Suspect]
     Active Substance: BUDESONIDE
     Indication: Asthma
     Dosage: 200 ?G, BID
  4. AZELASTINE [Suspect]
     Active Substance: AZELASTINE
     Indication: Asthma
     Dosage: UNK

REACTIONS (11)
  - Deafness [Unknown]
  - Otitis media chronic [Unknown]
  - Mastoiditis [Recovered/Resolved]
  - Ear pain [Unknown]
  - Otorrhoea [Recovered/Resolved]
  - Ear swelling [Unknown]
  - Tympanic membrane perforation [Unknown]
  - Otitis externa [Unknown]
  - Otitis externa fungal [Unknown]
  - Pyrexia [Unknown]
  - Tinnitus [Unknown]
